FAERS Safety Report 22361566 (Version 1)
Quarter: 2023Q2

REPORT INFORMATION
  Report Type: Spontaneous
  Country: US (occurrence: None)
  Receive Date: 20230524
  Receipt Date: 20230524
  Transmission Date: 20230721
  Serious: No
  Sender: FDA-Public Use
  Company Number: None

PATIENT
  Age: 27 Year
  Sex: Female
  Weight: 105.75 kg

DRUGS (1)
  1. DEXTROAMPHET SACCHARAT, AMPHET ASPARTATE, DEXTROAMPHET SULFATE AND AMP [Suspect]
     Active Substance: AMPHETAMINE ASPARTATE\AMPHETAMINE ASPARTATE MONOHYDRATE\AMPHETAMINE SULFATE\DEXTROAMPHETAMINE SACCHA
     Indication: Attention deficit hyperactivity disorder
     Dosage: OTHER QUANTITY : 1 CAPSULE(S);?
     Route: 048
     Dates: start: 20230508, end: 20230523

REACTIONS (10)
  - Product availability issue [None]
  - Product substitution issue [None]
  - Insomnia [None]
  - Anger [None]
  - Agitation [None]
  - Depressed mood [None]
  - Migraine [None]
  - Feeling jittery [None]
  - Eye pain [None]
  - Peripheral coldness [None]

NARRATIVE: CASE EVENT DATE: 20230508
